FAERS Safety Report 18942207 (Version 3)
Quarter: 2023Q2

REPORT INFORMATION
  Report Type: Report from Study
  Country: US (occurrence: US)
  Receive Date: 20210225
  Receipt Date: 20230428
  Transmission Date: 20230722
  Serious: Yes (Other)
  Sender: FDA-Public Use
  Company Number: US-TAKEDA-2021TUS010521

PATIENT
  Sex: Female

DRUGS (2)
  1. VEDOLIZUMAB [Suspect]
     Active Substance: VEDOLIZUMAB
     Indication: Crohn^s disease
     Dosage: 300 MILLIGRAM, Q4WEEKS
     Route: 042
     Dates: start: 2020
  2. VEDOLIZUMAB [Suspect]
     Active Substance: VEDOLIZUMAB
     Dosage: 300 MILLIGRAM, Q6WEEKS
     Route: 042

REACTIONS (20)
  - Crohn^s disease [Unknown]
  - Anaphylactic reaction [Unknown]
  - Contrast media allergy [Unknown]
  - Off label use [Unknown]
  - Product dose omission issue [Unknown]
  - Regurgitation [Unknown]
  - Abdominal pain upper [Unknown]
  - Infection [Unknown]
  - Hernia repair [Unknown]
  - Diarrhoea [Unknown]
  - Hypercholesterolaemia [Unknown]
  - Rhinitis allergic [Unknown]
  - Cerumen impaction [Unknown]
  - Glucose tolerance impaired [Unknown]
  - Iron deficiency anaemia [Unknown]
  - Leukocytosis [Unknown]
  - Erythema [Unknown]
  - Hypertension [Unknown]
  - Muscle spasms [Unknown]
  - Arthralgia [Unknown]

NARRATIVE: CASE EVENT DATE: 20200101
